FAERS Safety Report 19481180 (Version 2)
Quarter: 2021Q3

REPORT INFORMATION
  Report Type: Spontaneous
  Country: US (occurrence: US)
  Receive Date: 20210701
  Receipt Date: 20210802
  Transmission Date: 20211014
  Serious: Yes (Death)
  Sender: FDA-Public Use
  Company Number: US-JNJFOC-20210649859

PATIENT
  Age: 58 Year
  Sex: Male

DRUGS (2)
  1. XANAX [Concomitant]
     Active Substance: ALPRAZOLAM
     Indication: ANXIETY
     Dosage: ONCE EVERY 4?6 HOURS AS NEEDED.
     Route: 065
     Dates: start: 20210304, end: 20210310
  2. BENADRYL [Suspect]
     Active Substance: DIPHENHYDRAMINE HYDROCHLORIDE
     Indication: SLEEP DISORDER THERAPY
     Dosage: WE ASSUME THE TWO TABLETS. ONCE A DAY
     Route: 065

REACTIONS (2)
  - Product use in unapproved indication [Fatal]
  - Toxicity to various agents [Fatal]

NARRATIVE: CASE EVENT DATE: 20210313
